FAERS Safety Report 10037942 (Version 1)
Quarter: 2014Q1

REPORT INFORMATION
  Report Type: Spontaneous
  Country: HR (occurrence: HR)
  Receive Date: 20140326
  Receipt Date: 20140326
  Transmission Date: 20141002
  Serious: Yes (Death)
  Sender: FDA-Public Use
  Company Number: HR-BEH-2014041304

PATIENT
  Sex: Male

DRUGS (3)
  1. INTRAVENOUS IMMUNOGLOBULIN G [Suspect]
     Indication: TOXIC SHOCK SYNDROME
     Route: 042
  2. INTRAVENOUS IMMUNOGLOBULIN G [Suspect]
     Indication: SEPSIS
     Route: 042
  3. INTRAVENOUS IMMUNOGLOBULIN G [Suspect]
     Indication: TOXIC SHOCK SYNDROME
     Route: 042

REACTIONS (1)
  - Drug ineffective for unapproved indication [Fatal]
